FAERS Safety Report 7013634-5 (Version None)
Quarter: 2010Q3

REPORT INFORMATION
  Report Type: 
  Country: None (occurrence: None)
  Receive Date: 20100924
  Receipt Date: 20100914
  Transmission Date: 20110219
  Serious: Yes (Other)
  Sender: FDA-Public Use
  Company Number: US-PFIZER INC-2010082893

PATIENT
  Sex: Female
  Weight: 91.625 kg

DRUGS (19)
  1. LYRICA [Suspect]
     Indication: NEUROPATHY PERIPHERAL
     Dosage: 200 MG, 1X/DAY
     Route: 048
     Dates: start: 20080103
  2. FENTANYL [Suspect]
     Dosage: UNK
  3. NEXIUM [Concomitant]
     Dosage: 40 MG, 2X/DAY
     Route: 048
  4. XANAX [Concomitant]
     Dosage: 1 MG, 4XD AND 3XD AS NEEDED
     Route: 048
  5. LIPITOR [Concomitant]
     Dosage: 10 MG, 1X/DAY
     Route: 048
  6. ACYCLOVIR [Concomitant]
     Dosage: 400 MG, 2X/DAY
     Route: 048
  7. PROMETHAZINE HYDROCHLORIDE [Concomitant]
     Dosage: 25MG EVERY 6 HOURS AS NEEDED
     Route: 048
  8. VITAMIN D [Concomitant]
     Dosage: 800 IU, 1X/DAY
     Route: 048
  9. TUMS [Concomitant]
     Dosage: 1500 MG, 1X/DAY
     Route: 048
  10. RITALIN [Concomitant]
  11. ULTRAM [Concomitant]
     Dosage: 50MG EVERY 4 TO 6 HOURS AS NEEDED,
     Route: 048
  12. POLYETHYLENE GLYCOL [Concomitant]
     Dosage: UNK
  13. TIGAN [Concomitant]
     Dosage: 1 EVERY 6 HOURS AS NEEDED
  14. REGLAN [Concomitant]
     Dosage: 5 MG, UNK
     Route: 048
  15. PRESERVISION SOFTGELS WITH LUTEIN [Concomitant]
     Dosage: UNK
     Route: 048
  16. NORCO [Concomitant]
     Dosage: UNK
  17. THERA TEARS [Concomitant]
     Dosage: UNK
  18. VITAMIN B6 [Concomitant]
     Dosage: 100 MG, UNK
  19. TRIAMTERENE HYDROCHLORIDE [Concomitant]
     Indication: OEDEMA
     Dosage: UNK
     Route: 048

REACTIONS (8)
  - BLOOD POTASSIUM DECREASED [None]
  - CHOKING [None]
  - OEDEMA PERIPHERAL [None]
  - SUICIDAL IDEATION [None]
  - URINARY RETENTION [None]
  - WEIGHT INCREASED [None]
  - WHEEZING [None]
  - WITHDRAWAL SYNDROME [None]
